FAERS Safety Report 15703351 (Version 1)
Quarter: 2018Q4

REPORT INFORMATION
  Report Type: Spontaneous
  Country: ZA (occurrence: ZA)
  Receive Date: 20181210
  Receipt Date: 20181210
  Transmission Date: 20190205
  Serious: Yes (Death, Hospitalization, Other)
  Sender: FDA-Public Use
  Company Number: ZA-CIPLA LTD.-2018ZA23378

PATIENT

DRUGS (3)
  1. HEPARIN [Suspect]
     Active Substance: HEPARIN SODIUM
     Indication: ANTICOAGULANT THERAPY
     Dosage: UNK, FROM 6 TO 12 WEEKS OF GESTATION PERIOD
     Route: 042
  2. WARFARIN [Suspect]
     Active Substance: WARFARIN
     Indication: ANTICOAGULANT THERAPY
     Dosage: UNK, UPTO 6 WEEKS OF GESTATION PERIOD
     Route: 065
  3. WARFARIN [Suspect]
     Active Substance: WARFARIN
     Dosage: UNK, FROM 12 TO 36 WEEKS OF GESTATION PERIOD
     Route: 065

REACTIONS (8)
  - Exposure during pregnancy [Unknown]
  - Pneumonia [Unknown]
  - Brain stem infarction [Unknown]
  - Death [Fatal]
  - Acute kidney injury [Unknown]
  - Premature rupture of membranes [Unknown]
  - Supraventricular tachycardia [Unknown]
  - Premature delivery [Unknown]
